FAERS Safety Report 24015768 (Version 1)
Quarter: 2024Q2

REPORT INFORMATION
  Report Type: Spontaneous
  Country: CN (occurrence: CN)
  Receive Date: 20240626
  Receipt Date: 20240626
  Transmission Date: 20240716
  Serious: Yes (Hospitalization, Other)
  Sender: FDA-Public Use
  Company Number: CN-PFIZER INC-PV202400083035

PATIENT
  Age: 40 Year
  Sex: Male
  Weight: 67.9 kg

DRUGS (3)
  1. TYGACIL [Suspect]
     Active Substance: TIGECYCLINE
     Indication: Anti-infective therapy
     Dosage: UNK
     Route: 041
     Dates: start: 20240603, end: 20240606
  2. TYGACIL [Suspect]
     Active Substance: TIGECYCLINE
     Dosage: 50 MG, 2X/DAY
     Route: 041
     Dates: start: 20240607, end: 20240610
  3. HETROMBOPAG OLAMINE [Suspect]
     Active Substance: HETROMBOPAG OLAMINE
     Indication: Platelet count decreased
     Dosage: 5 MG, 1X/DAY
     Route: 048
     Dates: start: 20240605, end: 20240612

REACTIONS (1)
  - Drug-induced liver injury [Recovering/Resolving]

NARRATIVE: CASE EVENT DATE: 20240605
